FAERS Safety Report 6210701-0 (Version None)
Quarter: 2009Q2

REPORT INFORMATION
  Report Type: 
  Country: None (occurrence: None)
  Receive Date: 20090528
  Receipt Date: 20090528
  Transmission Date: 20091009
  Serious: Yes (Life-Threatening)
  Sender: FDA-Public Use
  Company Number: None

PATIENT
  Age: 42 Year
  Sex: Female
  Weight: 49.8957 kg

DRUGS (2)
  1. AMBIEN [Suspect]
     Indication: POOR QUALITY SLEEP
     Dosage: 10MG 1 PO  3 NIGHTS
     Route: 048
     Dates: start: 20070101, end: 20070104
  2. AMBIEN [Suspect]
     Indication: SLEEP DISORDER THERAPY
     Dosage: 10MG 1 PO  3 NIGHTS
     Route: 048
     Dates: start: 20070101, end: 20070104

REACTIONS (3)
  - HEADACHE [None]
  - PARALYSIS [None]
  - PULSE ABSENT [None]
